FAERS Safety Report 24926711 (Version 1)
Quarter: 2025Q1

REPORT INFORMATION
  Report Type: Spontaneous
  Country: FR (occurrence: FR)
  Receive Date: 20250205
  Receipt Date: 20250205
  Transmission Date: 20250409
  Serious: Yes (Hospitalization, Other)
  Sender: CELLTRION
  Company Number: None

PATIENT

DRUGS (7)
  1. RITUXIMAB [Suspect]
     Active Substance: RITUXIMAB
     Indication: Anti-neutrophil cytoplasmic antibody positive vasculitis
     Dosage: 638 MG, EVERY 1 WEEK
     Route: 042
     Dates: start: 20240202, end: 20240215
  2. LANSOPRAZOLE [Concomitant]
     Active Substance: LANSOPRAZOLE
  3. AMLODIPINE [Concomitant]
     Active Substance: AMLODIPINE BESYLATE
  4. BACTRIM [Concomitant]
     Active Substance: SULFAMETHOXAZOLE\TRIMETHOPRIM
  5. PREDNISOLONE [Concomitant]
     Active Substance: PREDNISOLONE
  6. ARANESP [Concomitant]
     Active Substance: DARBEPOETIN ALFA
  7. SODIUM BICARBONATE [Concomitant]
     Active Substance: SODIUM BICARBONATE

REACTIONS (3)
  - Acute kidney injury [Recovered/Resolved]
  - Condition aggravated [Recovered/Resolved]
  - Overdose [Unknown]

NARRATIVE: CASE EVENT DATE: 20240215
